FAERS Safety Report 5238548-2 (Version None)
Quarter: 2007Q1

REPORT INFORMATION
  Report Type: 
  Country: None (occurrence: None)
  Receive Date: 20070215
  Receipt Date: 20070208
  Transmission Date: 20070707
  Serious: Yes (Death, Hospitalization)
  Sender: FDA-Public Use
  Company Number: GR-GLAXOSMITHKLINE-B0458443A

PATIENT
  Age: 80 Year
  Sex: Female

DRUGS (1)
  1. TIMENTIN [Suspect]
     Route: 042
     Dates: start: 20060101, end: 20060101

REACTIONS (3)
  - CARDIAC ARREST [None]
  - DEATH [None]
  - HAEMATOMA [None]
